FAERS Safety Report 7293580-2 (Version None)
Quarter: 2011Q1

REPORT INFORMATION
  Report Type: 
  Country: None (occurrence: None)
  Receive Date: 20110215
  Receipt Date: 20110210
  Transmission Date: 20110831
  Serious: Yes (Other)
  Sender: FDA-Public Use
  Company Number: GB-PFIZER INC-2011031977

PATIENT
  Sex: Female

DRUGS (1)
  1. SUTENT [Suspect]
     Indication: METASTATIC RENAL CELL CARCINOMA
     Dosage: 50 MG, CYCLIC, 1ST CYCLE
     Dates: start: 20101213

REACTIONS (4)
  - LIVER FUNCTION TEST ABNORMAL [None]
  - CONTUSION [None]
  - BLOOD CREATININE ABNORMAL [None]
  - PLATELET COUNT DECREASED [None]
